FAERS Safety Report 7230964-2 (Version None)
Quarter: 2011Q1

REPORT INFORMATION
  Report Type: 
  Country: None (occurrence: None)
  Receive Date: 20110118
  Receipt Date: 20110112
  Transmission Date: 20110831
  Serious: Yes (Hospitalization)
  Sender: FDA-Public Use
  Company Number: ES-ROCHE-751373

PATIENT
  Age: 45 Year
  Sex: Female

DRUGS (3)
  1. PEGASYS [Suspect]
     Route: 058
     Dates: end: 20101228
  2. INTERFERON ALFA-2A [Suspect]
     Dosage: START AND STOP DATE: YEARS AGO
     Route: 065
  3. RIBAVIRIN [Concomitant]
     Dosage: FREQ: DAILY
     Route: 048

REACTIONS (1)
  - EPILEPSY [None]
